FAERS Safety Report 23242275 (Version 1)
Quarter: 2023Q4

REPORT INFORMATION
  Report Type: Spontaneous
  Country: BR (occurrence: BR)
  Receive Date: 20231129
  Receipt Date: 20231129
  Transmission Date: 20240110
  Serious: No
  Sender: FDA-Public Use
  Company Number: BR-WW-2023-AMR-157919

PATIENT
  Age: 42 Year
  Sex: Female

DRUGS (1)
  1. DUTASTERIDE [Suspect]
     Active Substance: DUTASTERIDE
     Indication: Urine flow decreased
     Dosage: 0.5 MG, 1 DF
     Route: 065

REACTIONS (2)
  - Product prescribing issue [Not Recovered/Not Resolved]
  - Product prescribing error [Not Recovered/Not Resolved]
